FAERS Safety Report 6505351-2 (Version None)
Quarter: 2009Q4

REPORT INFORMATION
  Report Type: 
  Country: None (occurrence: None)
  Receive Date: 20091218
  Receipt Date: 20091211
  Transmission Date: 20100525
  Serious: Yes (Other)
  Sender: FDA-Public Use
  Company Number: GB-ASTRAZENECA-2008GB01389

PATIENT
  Age: 23 Year
  Sex: Male

DRUGS (2)
  1. OMEPRAZOLE [Suspect]
     Indication: GASTRITIS
     Route: 048
     Dates: start: 20080705, end: 20080707
  2. PARACETAMOL [Concomitant]
     Route: 065

REACTIONS (3)
  - CHROMATURIA [None]
  - RASH [None]
  - THROAT TIGHTNESS [None]
